FAERS Safety Report 5705002-0 (Version None)
Quarter: 2008Q2

REPORT INFORMATION
  Report Type: 
  Country: None (occurrence: None)
  Receive Date: 20080414
  Receipt Date: 20080403
  Transmission Date: 20081010
  Serious: Yes (Other)
  Sender: FDA-Public Use
  Company Number: US-AMGEN-STX264577

PATIENT
  Sex: Female
  Weight: 39.2 kg

DRUGS (4)
  1. ENBREL [Suspect]
     Indication: PSORIATIC ARTHROPATHY
     Route: 058
     Dates: start: 20070103, end: 20080130
  2. ENBREL [Suspect]
     Indication: PSORIASIS
  3. METHOTREXATE [Concomitant]
     Indication: PSORIATIC ARTHROPATHY
     Route: 058
     Dates: start: 20060203
  4. METHOTREXATE [Concomitant]
     Indication: PSORIASIS

REACTIONS (6)
  - DYSAESTHESIA [None]
  - INJECTION SITE REACTION [None]
  - MOVEMENT DISORDER [None]
  - NEURALGIA [None]
  - PYREXIA [None]
  - SLEEP DISORDER [None]
